FAERS Safety Report 26201829 (Version 1)
Quarter: 2025Q4

REPORT INFORMATION
  Report Type: Spontaneous
  Country: LB (occurrence: LB)
  Receive Date: 20251226
  Receipt Date: 20251226
  Transmission Date: 20260117
  Serious: Yes (Hospitalization)
  Sender: MACLEODS
  Company Number: LB-MLMSERVICE-20251210-PI746134-00105-1

PATIENT

DRUGS (6)
  1. CLOBETASOL [Suspect]
     Active Substance: CLOBETASOL
     Indication: Erythrodermic psoriasis
     Dosage: APPROXIMATELY 30 G/DAY
     Route: 061
  2. IXEKIZUMAB [Suspect]
     Active Substance: IXEKIZUMAB
     Indication: Erythrodermic psoriasis
     Route: 065
  3. PROPRANOLOL [Concomitant]
     Active Substance: PROPRANOLOL HYDROCHLORIDE
     Indication: Varices oesophageal
     Route: 065
  4. PAROXETINE [Concomitant]
     Active Substance: PAROXETINE
     Indication: Bipolar disorder
     Route: 065
  5. MIRTAZAPINE [Concomitant]
     Active Substance: MIRTAZAPINE
     Indication: Bipolar disorder
     Route: 065
  6. CHLORPROMAZINE [Concomitant]
     Active Substance: CHLORPROMAZINE
     Indication: Bipolar disorder
     Route: 065

REACTIONS (2)
  - Disseminated herpes simplex [Recovered/Resolved]
  - Herpes simplex [Recovered/Resolved]
